FAERS Safety Report 15859939 (Version 3)
Quarter: 2020Q1

REPORT INFORMATION
  Report Type: Report from Study
  Country: US (occurrence: US)
  Receive Date: 20190123
  Receipt Date: 20200104
  Transmission Date: 20200409
  Serious: No
  Sender: FDA-Public Use
  Company Number: PHEH2019US002861

PATIENT
  Age: 52 Year
  Sex: Female

DRUGS (1)
  1. COSENTYX [Suspect]
     Active Substance: SECUKINUMAB
     Indication: PSORIATIC ARTHROPATHY
     Dosage: 300 MG, QMO
     Route: 058
     Dates: start: 20140901

REACTIONS (5)
  - Drug ineffective [Unknown]
  - Nasopharyngitis [Unknown]
  - Pain [Unknown]
  - Inappropriate schedule of product administration [Unknown]
  - Joint stiffness [Unknown]

NARRATIVE: CASE EVENT DATE: 20180901
